FAERS Safety Report 8217432 (Version 2)
Quarter: 2012Q4

REPORT INFORMATION
  Report Type: 
  Country: US (occurrence: US)
  Receive Date: 20111101
  Receipt Date: 20121226
  Transmission Date: 20130627
  Serious: Yes (Congenital Anomaly, Other)
  Sender: FDA-Public Use
  Company Number: US-PFIZER INC-2011264230

PATIENT
  Sex: Male

DRUGS (4)
  1. ZOLOFT [Suspect]
     Dosage: UNK
     Route: 064
     Dates: start: 2008, end: 2009
  2. ZOLOFT [Suspect]
     Dosage: UNK
     Route: 064
     Dates: start: 2009, end: 2010
  3. KEPPRA [Concomitant]
     Indication: SEIZURE
     Dosage: UNK
     Route: 064
  4. PRENATAL VITAMINS [Concomitant]
     Dosage: UNK
     Route: 064

REACTIONS (5)
  - Maternal exposure timing unspecified [Unknown]
  - Multiple cardiac defects [Unknown]
  - Atrial septal defect [Not Recovered/Not Resolved]
  - Ventricular septal defect [Recovered/Resolved]
  - Pulmonary malformation [Unknown]
